FAERS Safety Report 12679536 (Version 1)
Quarter: 2016Q3

REPORT INFORMATION
  Report Type: Spontaneous
  Country: US (occurrence: None)
  Receive Date: 20160823
  Receipt Date: 20160823
  Transmission Date: 20161109
  Serious: Yes (Disabling)
  Sender: FDA-Public Use
  Company Number: None

PATIENT
  Age: 44 Year
  Sex: Male
  Weight: 77 kg

DRUGS (2)
  1. IBUPROFEN. [Concomitant]
     Active Substance: IBUPROFEN
  2. CIPROFLOXACIN, 500MG TEVA USA [Suspect]
     Active Substance: CIPROFLOXACIN
     Indication: ORCHITIS
     Route: 048

REACTIONS (3)
  - Paraesthesia [None]
  - Asthenia [None]
  - Burning sensation [None]

NARRATIVE: CASE EVENT DATE: 20160822
